FAERS Safety Report 5836866-8 (Version None)
Quarter: 2008Q3

REPORT INFORMATION
  Report Type: 
  Country: None (occurrence: None)
  Receive Date: 20080806
  Receipt Date: 20080806
  Transmission Date: 20090109
  Serious: Yes (Disabling)
  Sender: FDA-Public Use
  Company Number: None

PATIENT
  Age: 38 Year
  Sex: Male
  Weight: 81.6475 kg

DRUGS (2)
  1. CIPROFLOXACIN [Suspect]
     Indication: PYELONEPHRITIS
     Dosage: 500 MG TWICE DAILY PO
     Route: 048
     Dates: start: 20080623, end: 20080711
  2. OMEPRAZOLE [Concomitant]

REACTIONS (4)
  - GASTRIC DISORDER [None]
  - NEUROLOGICAL SYMPTOM [None]
  - NEUROPATHY PERIPHERAL [None]
  - NO REACTION ON PREVIOUS EXPOSURE TO DRUG [None]
